FAERS Safety Report 17199182 (Version 1)
Quarter: 2019Q4

REPORT INFORMATION
  Report Type: Report from Study
  Country: None (occurrence: CA)
  Receive Date: 20191225
  Receipt Date: 20191225
  Transmission Date: 20200122
  Serious: Yes (Hospitalization, Other)
  Sender: FDA-Public Use
  Company Number: CA-ABBVIE-19K-028-3208823-00

PATIENT
  Age: 77 Year
  Sex: Male

DRUGS (2)
  1. DIAMICRON [Concomitant]
     Active Substance: GLICLAZIDE
     Indication: PRODUCT USED FOR UNKNOWN INDICATION
  2. LUPRON DEPOT [Suspect]
     Active Substance: LEUPROLIDE ACETATE
     Indication: PROSTATE CANCER
     Route: 030
     Dates: start: 20060131

REACTIONS (6)
  - Disorientation [Unknown]
  - Cerebral thrombosis [Unknown]
  - Myocardial infarction [Unknown]
  - Diarrhoea [Unknown]
  - Delirium [Unknown]
  - Memory impairment [Unknown]

NARRATIVE: CASE EVENT DATE: 201911
